FAERS Safety Report 4886638-6 (Version None)
Quarter: 2006Q1

REPORT INFORMATION
  Report Type: 
  Country: None (occurrence: None)
  Receive Date: 20060119
  Receipt Date: 20060113
  Transmission Date: 20060701
  Serious: Yes (Hospitalization)
  Sender: FDA-Public Use
  Company Number: 2006JP000083

PATIENT
  Age: 68 Year
  Sex: Female

DRUGS (13)
  1. PROGRAF [Suspect]
     Indication: RHEUMATOID ARTHRITIS
     Dosage: 3 MG, ORAL
     Route: 048
     Dates: start: 20051219
  2. COVERSYL (PERINDOPRIL ERBUMINE) [Concomitant]
  3. SUNRYTHM (PILSICAINIDE  HYDROCHLORIDE) [Concomitant]
  4. WARFARIN SODIUM [Concomitant]
  5. URSODIOL [Concomitant]
  6. GASTER D TABLET [Concomitant]
  7. AZULFIDINE EN-TABS [Concomitant]
  8. ORCL (ACTARIT) [Concomitant]
  9. MOBIC [Concomitant]
  10. RISEDRONATE SODIUM [Concomitant]
  11. PREDNISOLONE [Concomitant]
  12. GLAKAY (MENATETRENONE) CAPSULE [Concomitant]
  13. METALCAPTASE [Concomitant]

REACTIONS (1)
  - SIALOADENITIS [None]
